FAERS Safety Report 15309517 (Version 4)
Quarter: 2018Q4

REPORT INFORMATION
  Report Type: Report from Study
  Country: US (occurrence: US)
  Receive Date: 20180823
  Receipt Date: 20181226
  Transmission Date: 20190204
  Serious: No
  Sender: FDA-Public Use
  Company Number: PHEH2018US035115

PATIENT
  Sex: Female

DRUGS (4)
  1. ENTRESTO [Suspect]
     Active Substance: SACUBITRIL\VALSARTAN
     Indication: CARDIAC FAILURE
     Dosage: 1 DF(24 MG SACUBITRIL, 26 MG  VALSARTAN), UNK
     Route: 048
  2. ENTRESTO [Suspect]
     Active Substance: SACUBITRIL\VALSARTAN
     Dosage: 1 DF(49 MG SACUBITRIL, 51 MG VALSARTAN), UNK
     Route: 048
  3. ENTRESTO [Suspect]
     Active Substance: SACUBITRIL\VALSARTAN
     Dosage: 1 DF(49 MG SACUBITRIL, 51 MG VALSARTAN), UNK
     Route: 048
  4. ENTRESTO [Suspect]
     Active Substance: SACUBITRIL\VALSARTAN
     Dosage: 1 DF(24 MG SACUBITRIL, 26 MG  VALSARTAN), UNK
     Route: 048

REACTIONS (7)
  - Joint swelling [Unknown]
  - Pruritus [Unknown]
  - Nasal pruritus [Unknown]
  - Nasal pruritus [Recovered/Resolved]
  - Micturition urgency [Recovered/Resolved]
  - Fatigue [Unknown]
  - Cough [Recovered/Resolved]
